FAERS Safety Report 8897601 (Version 1)
Quarter: 2012Q4

REPORT INFORMATION
  Report Type: Spontaneous
  Country: US (occurrence: None)
  Receive Date: 20121106
  Receipt Date: 20121106
  Transmission Date: 20130627
  Serious: Yes (Other)
  Sender: FDA-Public Use
  Company Number: ACO_32706_2012

PATIENT
  Age: 55 Year
  Sex: Female

DRUGS (1)
  1. AMPYRA (DALFAMPRIDINE) TABLET, 10MG [Suspect]
     Indication: DRUG USE FOR UNKNOWN INDICATION
     Route: 048
     Dates: start: 20121012, end: 201210

REACTIONS (7)
  - Petit mal epilepsy [None]
  - Fatigue [None]
  - Memory impairment [None]
  - Peripheral coldness [None]
  - Hypoaesthesia [None]
  - Multiple sclerosis relapse [None]
  - Paraesthesia [None]
